FAERS Safety Report 25896278 (Version 1)
Quarter: 2025Q4

REPORT INFORMATION
  Report Type: Spontaneous
  Country: US (occurrence: US)
  Receive Date: 20251008
  Receipt Date: 20251008
  Transmission Date: 20260117
  Serious: No
  Sender: ALEXION PHARMACEUTICALS
  Company Number: US-ASTRAZENECA-202508GLO026553US

PATIENT
  Age: 80 Year
  Sex: Female

DRUGS (4)
  1. ROSUVASTATIN [Interacting]
     Active Substance: ROSUVASTATIN
     Dosage: 5 MILLIGRAM EVERY OTHER DAY
  2. VOQUEZNA [Interacting]
     Active Substance: VONOPRAZAN FUMARATE
     Dosage: 20 MILLIGRAM, QD
     Dates: start: 20250806, end: 20250813
  3. VALSARTAN [Interacting]
     Active Substance: VALSARTAN
     Dosage: 80 MILLIGRAM, BID
     Route: 065
     Dates: start: 2015
  4. METFORMIN [Concomitant]
     Active Substance: METFORMIN HYDROCHLORIDE
     Dosage: 500 MILLIGRAM
     Route: 065

REACTIONS (9)
  - Drug interaction [Unknown]
  - Pain [Unknown]
  - Back pain [Unknown]
  - Bone pain [Unknown]
  - Pain in extremity [Unknown]
  - Malaise [Unknown]
  - Peripheral swelling [Unknown]
  - Abdominal pain upper [Unknown]
  - Headache [Unknown]
